FAERS Safety Report 5423684-8 (Version None)
Quarter: 2007Q3

REPORT INFORMATION
  Report Type: 
  Country: None (occurrence: None)
  Receive Date: 20070823
  Receipt Date: 20070817
  Transmission Date: 20080115
  Serious: Yes (Life-Threatening)
  Sender: FDA-Public Use
  Company Number: B0484007A

PATIENT
  Age: 58 Year
  Sex: Female

DRUGS (6)
  1. TRACRIUM [Suspect]
     Indication: GENERAL ANAESTHESIA
     Route: 042
     Dates: start: 20070418, end: 20070418
  2. HYPNOVEL [Suspect]
     Indication: GENERAL ANAESTHESIA
     Route: 042
     Dates: start: 20070418, end: 20070418
  3. DIPRIVAN [Suspect]
     Indication: GENERAL ANAESTHESIA
     Route: 042
     Dates: start: 20070418, end: 20070418
  4. KETAMINE HCL [Suspect]
     Indication: GENERAL ANAESTHESIA
     Route: 042
     Dates: start: 20070418, end: 20070418
  5. SUFENTANIL CITRATE [Suspect]
     Indication: GENERAL ANAESTHESIA
     Route: 042
     Dates: start: 20070418, end: 20070418
  6. CEFUROXIME [Suspect]
     Indication: GENERAL ANAESTHESIA
     Route: 042
     Dates: start: 20070418, end: 20070418

REACTIONS (4)
  - ANAPHYLACTIC SHOCK [None]
  - HISTAMINE LEVEL INCREASED [None]
  - HYPOTENSION [None]
  - TRYPTASE INCREASED [None]
